FAERS Safety Report 7677352-2 (Version None)
Quarter: 2011Q3

REPORT INFORMATION
  Report Type: 
  Country: None (occurrence: None)
  Receive Date: 20110808
  Receipt Date: 20110727
  Transmission Date: 20111222
  Serious: Yes (Life-Threatening)
  Sender: FDA-Public Use
  Company Number: 2011ST000183

PATIENT
  Age: 12 Year
  Sex: Female

DRUGS (2)
  1. TIENAM [Concomitant]
  2. ABELCET [Suspect]
     Indication: FUNGAL INFECTION
     Dosage: 150 MG; IV
     Route: 042
     Dates: start: 20110626, end: 20110705

REACTIONS (1)
  - BONE MARROW FAILURE [None]
